FAERS Safety Report 14304696 (Version 2)
Quarter: 2018Q1

REPORT INFORMATION
  Report Type: Spontaneous
  Country: GB (occurrence: GB)
  Receive Date: 20171219
  Receipt Date: 20180126
  Transmission Date: 20180509
  Serious: Yes (Hospitalization, Other)
  Sender: FDA-Public Use
  Company Number: GB-OTSUKA-16330292

PATIENT
  Age: 26 Year
  Sex: Male

DRUGS (1)
  1. ARIPIPRAZOLE. [Suspect]
     Active Substance: ARIPIPRAZOLE
     Indication: SCHIZOPHRENIA
     Dosage: STARTED 18 MONTHS AGO
     Route: 048
     Dates: start: 201011

REACTIONS (3)
  - Drug dose omission [Unknown]
  - Treatment noncompliance [Unknown]
  - Mental impairment [Recovering/Resolving]
